FAERS Safety Report 6907160-9 (Version None)
Quarter: 2010Q3

REPORT INFORMATION
  Report Type: 
  Country: None (occurrence: None)
  Receive Date: 20100804
  Receipt Date: 20100511
  Transmission Date: 20110219
  Serious: No
  Sender: FDA-Public Use
  Company Number: US-PFIZER INC-2005121172

PATIENT
  Sex: Male
  Weight: 68.027 kg

DRUGS (5)
  1. NARDIL [Suspect]
     Indication: DEPRESSION
     Dosage: 15 MG, 3X/DAY
     Route: 048
     Dates: start: 19980101
  2. NARDIL [Suspect]
     Dosage: 15 MG, 3X/DAY
     Route: 048
     Dates: start: 19700101
  3. PHENELZINE SULFATE (NARDIL) [Suspect]
     Indication: DEPRESSION
     Dosage: 15 MG, 3X/DAY
     Route: 048
  4. ZYPREXA [Concomitant]
     Dosage: UNK
     Route: 065
  5. ABILIFY [Concomitant]
     Indication: MOOD ALTERED
     Dosage: UNK

REACTIONS (6)
  - ABNORMAL DREAMS [None]
  - DEPRESSION [None]
  - DRUG ADMINISTRATION ERROR [None]
  - DRUG INEFFECTIVE [None]
  - ONYCHOMYCOSIS [None]
  - THERAPEUTIC RESPONSE DECREASED [None]
